FAERS Safety Report 9853026 (Version 1)
Quarter: 2014Q1

REPORT INFORMATION
  Report Type: Spontaneous
  Country: AU (occurrence: None)
  Receive Date: 20140127
  Receipt Date: 20140127
  Transmission Date: 20141002
  Serious: Yes (Other)
  Sender: FDA-Public Use
  Company Number: 2013000438

PATIENT
  Sex: Female

DRUGS (10)
  1. ACEON (PERINDOPRIL ERBUMINE) TABLET [Suspect]
     Indication: PRODUCT USED FOR UNKNOWN INDICATION
  2. DAPA-TABS [Suspect]
     Indication: PRODUCT USED FOR UNKNOWN INDICATION
  3. PAROXETINE HYDROCHLORIDE [Suspect]
     Indication: PRODUCT USED FOR UNKNOWN INDICATION
  4. ALEPAM (OXAZEPAM) [Concomitant]
  5. MARCROGOL 3350 9MARCRGOL 3350) [Concomitant]
  6. TEMAZEPAM (TEMAZEPAM) [Concomitant]
  7. PARACETAMOL (PARACETAMOL) [Concomitant]
  8. ACETYLSALICYLIC ACID (ACETYLSALICYLIC ACID) [Concomitant]
  9. FLUCLOXACILLIN SODIUM (FLUCLOXALLIN SODIUM) [Concomitant]
  10. SIMVASTATIN (SIMVASTATIN) [Concomitant]

REACTIONS (2)
  - Hypokalaemia [None]
  - Hyponatraemia [None]
